FAERS Safety Report 4615577-0 (Version None)
Quarter: 2005Q1

REPORT INFORMATION
  Report Type: 
  Country: None (occurrence: None)
  Receive Date: 20050317
  Receipt Date: 20050304
  Transmission Date: 20050727
  Serious: Yes (Hospitalization, Other)
  Sender: FDA-Public Use
  Company Number: 2005021985

PATIENT
  Age: 62 Year
  Sex: Male
  Weight: 108.1375 kg

DRUGS (8)
  1. CELEBREX [Suspect]
     Indication: RHEUMATOID ARTHRITIS
     Dosage: 200 MG (100 MG, 2 IN 1 D), ORAL
     Route: 048
     Dates: start: 20030101, end: 20041025
  2. BLINDED THERAPY (BLINDED THERAPY) [Suspect]
     Indication: RHEUMATOID ARTHRITIS
     Dosage: 3 IN 1 D, ORAL
     Route: 048
     Dates: start: 20040823, end: 20041029
  3. ACETAMINOPHEN [Concomitant]
  4. ESCITALOPRAM OXALATE [Concomitant]
  5. IBUPROFEN [Concomitant]
  6. DYAZIDE [Concomitant]
  7. FUROSEMIDE [Concomitant]
  8. PROPACET 100 [Concomitant]

REACTIONS (18)
  - ALVEOLITIS [None]
  - ANTINUCLEAR ANTIBODY POSITIVE [None]
  - BACTERIA URINE IDENTIFIED [None]
  - BLISTER [None]
  - EJECTION FRACTION DECREASED [None]
  - GENERALISED OEDEMA [None]
  - HAEMATOCRIT DECREASED [None]
  - HAEMOGLOBIN DECREASED [None]
  - IMMUNOGLOBULINS INCREASED [None]
  - INTERSTITIAL LUNG DISEASE [None]
  - PLATELET COUNT INCREASED [None]
  - PULMONARY FIBROSIS [None]
  - PULMONARY OEDEMA [None]
  - RASH SCALY [None]
  - RED BLOOD CELL SEDIMENTATION RATE INCREASED [None]
  - SKIN EXFOLIATION [None]
  - UROBILIN URINE PRESENT [None]
  - VENTRICULAR HYPERTROPHY [None]
